FAERS Safety Report 19194868 (Version 3)
Quarter: 2021Q3

REPORT INFORMATION
  Report Type: Spontaneous
  Country: US (occurrence: US)
  Receive Date: 20210429
  Receipt Date: 20210901
  Transmission Date: 20211014
  Serious: Yes (Disabling, Other)
  Sender: FDA-Public Use
  Company Number: US-PFIZER INC-2021387481

PATIENT
  Age: 59 Year
  Sex: Male
  Weight: 75.74 kg

DRUGS (1)
  1. XELJANZ XR [Suspect]
     Active Substance: TOFACITINIB CITRATE
     Dosage: 11 MG
     Dates: start: 20210217

REACTIONS (3)
  - Neck injury [Unknown]
  - Fall [Unknown]
  - Rheumatoid arthritis [Unknown]
